FAERS Safety Report 11112120 (Version 1)
Quarter: 2015Q2

REPORT INFORMATION
  Report Type: Spontaneous
  Country: CA (occurrence: CA)
  Receive Date: 20150514
  Receipt Date: 20150514
  Transmission Date: 20150821
  Serious: Yes (Other)
  Sender: FDA-Public Use
  Company Number: CA-PFIZER INC-2015024242

PATIENT
  Age: 48 Year
  Sex: Male

DRUGS (2)
  1. TECTA [Suspect]
     Active Substance: PANTOPRAZOLE MAGNESIUM
     Indication: ULCER
     Dosage: 40 MG, DAILY
     Route: 048
     Dates: start: 20140915, end: 20140920
  2. FLUVOXAMINE [Concomitant]
     Active Substance: FLUVOXAMINE
     Dosage: UNK

REACTIONS (9)
  - Condition aggravated [Recovered/Resolved]
  - Asthenia [Recovered/Resolved]
  - Morose [Recovered/Resolved]
  - Apathy [Recovered/Resolved]
  - Depressed mood [Recovered/Resolved]
  - Lethargy [Recovered/Resolved]
  - Somnolence [Recovered/Resolved]
  - Drug interaction [Recovered/Resolved]
  - Crying [Recovered/Resolved]

NARRATIVE: CASE EVENT DATE: 20140917
